FAERS Safety Report 8272596-3 (Version None)
Quarter: 2012Q2

REPORT INFORMATION
  Report Type: 
  Country: None (occurrence: None)
  Receive Date: 20120410
  Receipt Date: 20120402
  Transmission Date: 20120825
  Serious: Yes (Hospitalization)
  Sender: FDA-Public Use
  Company Number: DE-AMGEN-DEUSP2012017073

PATIENT
  Age: 68 Year
  Sex: Female
  Weight: 71.4 kg

DRUGS (5)
  1. LEVOTHYROXINE SODIUM [Concomitant]
     Indication: THYROID DISORDER
     Dosage: 125 MUG, UNK
  2. PROLIA [Suspect]
     Indication: OSTEOPOROSIS POSTMENOPAUSAL
     Dosage: UNK
     Dates: start: 20120305
  3. CALCIUM + D3 [Concomitant]
  4. CODEINE SUL TAB [Concomitant]
     Dosage: UNK UNK, PRN
  5. ROXITHROMYCIN [Concomitant]
     Indication: BRONCHOPNEUMONIA

REACTIONS (9)
  - VERTIGO [None]
  - COUGH [None]
  - HEADACHE [None]
  - VENTRICULAR TACHYCARDIA [None]
  - OROPHARYNGEAL PAIN [None]
  - GENERAL PHYSICAL HEALTH DETERIORATION [None]
  - PAIN IN EXTREMITY [None]
  - VISUAL IMPAIRMENT [None]
  - NAUSEA [None]
